FAERS Safety Report 8137402-6 (Version None)
Quarter: 2012Q1

REPORT INFORMATION
  Report Type: 
  Country: None (occurrence: None)
  Receive Date: 20120103
  Receipt Date: 20110903
  Transmission Date: 20120608
  Serious: No
  Sender: FDA-Public Use
  Company Number: AE-2011-001340

PATIENT
  Age: 31 Year
  Sex: Male

DRUGS (3)
  1. RIBAVIRIN [Concomitant]
  2. INCIVEK [Suspect]
     Dosage: (3 IN 1 D)
     Dates: start: 20110830
  3. PEGINTERFERON (PEG-INTERFERON ALFA-2A) [Concomitant]

REACTIONS (1)
  - DYSGEUSIA [None]
